FAERS Safety Report 25859564 (Version 1)
Quarter: 2025Q3

REPORT INFORMATION
  Report Type: Report from Study
  Country: PH (occurrence: PH)
  Receive Date: 20250929
  Receipt Date: 20250929
  Transmission Date: 20251021
  Serious: Yes (Other)
  Sender: OTSUKA
  Company Number: PH-MMM-Otsuka-WY86UC7P

PATIENT
  Sex: Female

DRUGS (1)
  1. TOLVAPTAN [Suspect]
     Active Substance: TOLVAPTAN
     Indication: Hypervolaemia
     Dosage: 2 DF, QD (15 MG TABLET 2 TABLETS A DAY )
     Dates: start: 202410, end: 202505

REACTIONS (2)
  - Dialysis [Not Recovered/Not Resolved]
  - Overdose [Unknown]

NARRATIVE: CASE EVENT DATE: 20241001
